FAERS Safety Report 15229737 (Version 1)
Quarter: 2018Q3

REPORT INFORMATION
  Report Type: Spontaneous
  Country: US (occurrence: US)
  Receive Date: 20180802
  Receipt Date: 20180802
  Transmission Date: 20181010
  Serious: Yes (Other)
  Sender: FDA-Public Use
  Company Number: US-ACCORD-061911

PATIENT
  Age: 57 Year
  Sex: Female
  Weight: 75.75 kg

DRUGS (20)
  1. ARMOUR THYROID [Concomitant]
     Active Substance: THYROID, PORCINE
     Dates: start: 20000101
  2. COLECALCIFEROL [Concomitant]
     Active Substance: CHOLECALCIFEROL
     Dosage: 2,000 UNIT
  3. TRASTUZUMAB. [Concomitant]
     Active Substance: TRASTUZUMAB
     Route: 042
  4. CALCIUM [Concomitant]
     Active Substance: CALCIUM
     Dosage: STRENGTH: 500 MG
  5. LORAZEPAM. [Concomitant]
     Active Substance: LORAZEPAM
  6. PARAPLATIN [Suspect]
     Active Substance: CARBOPLATIN
     Indication: BREAST CANCER
     Dosage: NO OF CYCLES: 06
     Route: 042
     Dates: start: 20131025, end: 20140207
  7. TAXOTERE [Concomitant]
     Active Substance: DOCETAXEL
     Route: 042
  8. ENDURACIN [Concomitant]
     Active Substance: NIACIN
     Dosage: STRENGTH: 500 MG
  9. AIOXI [Concomitant]
     Route: 042
  10. PEGFILGRASTIM [Concomitant]
     Active Substance: PEGFILGRASTIM
     Route: 058
  11. DOCETAXEL ACCORD [Suspect]
     Active Substance: DOCETAXEL
     Indication: BREAST CANCER
     Dates: start: 20131025, end: 20140207
  12. LYSINE [Concomitant]
     Active Substance: LYSINE
  13. IRON [Concomitant]
     Active Substance: IRON
     Route: 048
  14. CURCUMA LONGA [Concomitant]
     Active Substance: HERBALS\TURMERIC
  15. DEXAMETHASONE. [Concomitant]
     Active Substance: DEXAMETHASONE
     Dosage: STRENGTH: 4 MG
     Route: 048
  16. LEVOTHYROXINE. [Concomitant]
     Active Substance: LEVOTHYROXINE
     Dates: start: 20110101
  17. PROCHLORPERAZINE. [Concomitant]
     Active Substance: PROCHLORPERAZINE
  18. SELENIUM [Concomitant]
     Active Substance: SELENIUM
  19. BIOTIN [Concomitant]
     Active Substance: BIOTIN
     Dates: start: 2013
  20. HERCEPTIN [Concomitant]
     Active Substance: TRASTUZUMAB

REACTIONS (1)
  - Alopecia [Not Recovered/Not Resolved]

NARRATIVE: CASE EVENT DATE: 20140101
